FAERS Safety Report 7671194-X (Version None)
Quarter: 2011Q3

REPORT INFORMATION
  Report Type: 
  Country: None (occurrence: None)
  Receive Date: 20110809
  Receipt Date: 20110726
  Transmission Date: 20111222
  Serious: Yes (Hospitalization, Other)
  Sender: FDA-Public Use
  Company Number: US-SANOFI-AVENTIS-2011SA050298

PATIENT
  Age: 73 Year
  Sex: Female

DRUGS (25)
  1. HYDROCHLOROTHIAZIDE [Suspect]
     Route: 065
  2. MACROBID [Suspect]
     Route: 065
  3. CIPROFLOXACIN [Suspect]
     Route: 065
  4. METOCLOPRAMIDE [Suspect]
     Route: 065
  5. ATACAND [Suspect]
     Route: 065
  6. CLONIDINE [Concomitant]
     Indication: BLOOD PRESSURE ABNORMAL
  7. FUROSEMIDE [Suspect]
     Route: 065
  8. LISINOPRIL [Suspect]
     Route: 065
  9. ATACAND [Suspect]
     Route: 065
  10. LEVAQUIN [Suspect]
     Route: 065
  11. BENICAR [Suspect]
     Route: 048
     Dates: start: 20070101
  12. PHENYTOIN [Suspect]
     Route: 065
     Dates: start: 19960101
  13. VALSARTAN [Suspect]
     Route: 065
  14. XANAX [Suspect]
     Route: 065
  15. LIDOCAINE [Suspect]
     Route: 065
     Dates: start: 20100513, end: 20100513
  16. CARDIZEM [Suspect]
     Route: 065
  17. BACTRIM [Suspect]
     Route: 065
  18. DEPAKOTE [Suspect]
     Route: 065
     Dates: start: 19960101
  19. AVAPRO [Suspect]
     Indication: HYPERTENSION
     Route: 065
  20. LEVOTHYROXINE SODIUM [Concomitant]
  21. AMLODIPINE BESYLATE [Suspect]
     Route: 048
     Dates: start: 19950101
  22. AMLODIPINE BESYLATE [Suspect]
     Route: 048
     Dates: start: 19970101
  23. AMLODIPINE BESYLATE [Suspect]
     Route: 048
     Dates: start: 20100101
  24. LOSARTAN POTASSIUM [Suspect]
     Route: 065
  25. NEBIVOLOL HCL [Suspect]
     Route: 065

REACTIONS (12)
  - BURNING SENSATION [None]
  - PALPITATIONS [None]
  - TOE OPERATION [None]
  - LOSS OF CONSCIOUSNESS [None]
  - ARTERIOSCLEROSIS CORONARY ARTERY [None]
  - WEIGHT DECREASED [None]
  - INGROWING NAIL [None]
  - ABDOMINAL DISTENSION [None]
  - CHOLECYSTECTOMY [None]
  - BLOOD PRESSURE INCREASED [None]
  - CYSTITIS [None]
  - BLOOD COUNT ABNORMAL [None]
